FAERS Safety Report 6912833-8 (Version None)
Quarter: 2010Q3

REPORT INFORMATION
  Report Type: 
  Country: None (occurrence: None)
  Receive Date: 20100806
  Receipt Date: 20090127
  Transmission Date: 20110219
  Serious: No
  Sender: FDA-Public Use
  Company Number: US-PFIZER INC-2009162717

PATIENT
  Sex: Male
  Weight: 108 kg

DRUGS (6)
  1. DETROL LA [Suspect]
     Indication: MICTURITION URGENCY
     Dosage: 12 MG, 1X/DAY
     Route: 048
     Dates: start: 20090122
  2. FINASTERIDE [Concomitant]
     Dosage: UNK
  3. LIPITOR [Concomitant]
     Dosage: UNK
  4. LAXATIVES [Concomitant]
     Dosage: UNK
  5. COSOPT [Concomitant]
     Dosage: UNK
  6. LUMIGAN [Concomitant]
     Dosage: UNK

REACTIONS (1)
  - CONSTIPATION [None]
